FAERS Safety Report 8319442-7 (Version None)
Quarter: 2012Q2

REPORT INFORMATION
  Report Type: 
  Country: None (occurrence: None)
  Receive Date: 20120427
  Receipt Date: 20120417
  Transmission Date: 20120825
  Serious: Yes (Life-Threatening, Hospitalization)
  Sender: FDA-Public Use
  Company Number: NL-BRISTOL-MYERS SQUIBB COMPANY-16534026

PATIENT
  Age: 83 Year
  Sex: Male

DRUGS (9)
  1. CHOLECALCIFEROL [Concomitant]
  2. PREDNISOLONE [Concomitant]
     Dosage: 60MG ADAY(NOV2011) GRADULLAY LOWERED TO 30 MG/DAY(FEB2012). PREDNISOLON SANDOZ TABLET 20MG.
     Route: 048
     Dates: start: 20111125
  3. LIPITOR [Suspect]
     Indication: HYPERCHOLESTEROLAEMIA
     Dosage: LIPITOR TABS
     Route: 048
     Dates: start: 20111019, end: 20120306
  4. PANTOPRAZOLE [Suspect]
     Indication: PROPHYLAXIS AGAINST GASTROINTESTINAL ULCER
     Dosage: PANTOPRAZOLE ACTAVIS TABLET MSR 40MG
     Route: 048
     Dates: start: 20111125, end: 20120306
  5. IRBESARTAN [Suspect]
     Indication: HYPERTENSION
     Route: 048
     Dates: start: 20111009, end: 20120306
  6. ALENDRONIC ACID [Concomitant]
  7. CALCIUM CARBONATE [Concomitant]
  8. CALCIUM [Concomitant]
  9. VALERIAN [Suspect]
     Route: 048
     Dates: start: 19900101, end: 20120329

REACTIONS (1)
  - TOXIC EPIDERMAL NECROLYSIS [None]
